FAERS Safety Report 21616892 (Version 2)
Quarter: 2023Q1

REPORT INFORMATION
  Report Type: Spontaneous
  Country: JP (occurrence: JP)
  Receive Date: 20221118
  Receipt Date: 20230201
  Transmission Date: 20230417
  Serious: Yes (Hospitalization)
  Sender: FDA-Public Use
  Company Number: JP-Eisai Medical Research-EC-2022-127840

PATIENT
  Age: 55 Year
  Sex: Female

DRUGS (5)
  1. LENVIMA [Suspect]
     Active Substance: LENVATINIB
     Indication: Renal cell carcinoma
     Route: 048
     Dates: start: 20220426, end: 202205
  2. LENVIMA [Suspect]
     Active Substance: LENVATINIB
     Route: 048
     Dates: start: 2022, end: 2022
  3. LENVIMA [Suspect]
     Active Substance: LENVATINIB
     Route: 048
     Dates: start: 2022, end: 202209
  4. LENVIMA [Suspect]
     Active Substance: LENVATINIB
     Route: 048
     Dates: start: 202210, end: 202210
  5. KEYTRUDA [Suspect]
     Active Substance: PEMBROLIZUMAB
     Indication: Renal cell carcinoma
     Route: 041
     Dates: start: 20220426, end: 2022

REACTIONS (1)
  - Fulminant type 1 diabetes mellitus [Not Recovered/Not Resolved]

NARRATIVE: CASE EVENT DATE: 20221001
